FAERS Safety Report 14743906 (Version 7)
Quarter: 2024Q3

REPORT INFORMATION
  Report Type: Spontaneous
  Country: IT (occurrence: IT)
  Receive Date: 20180410
  Receipt Date: 20240825
  Transmission Date: 20241017
  Serious: Yes (Hospitalization)
  Sender: MERCK
  Company Number: IT-009507513-1804ITA001892

PATIENT
  Age: 42 Year
  Sex: Female

DRUGS (9)
  1. POSACONAZOLE [Suspect]
     Active Substance: POSACONAZOLE
     Indication: Mucormycosis
     Dosage: 100 MG, TID, TARGET TROUGH 1-2 UG/ML
     Route: 048
  2. POSACONAZOLE [Suspect]
     Active Substance: POSACONAZOLE
     Dosage: 100 MG, BID (TARGET TROUGH LEVEL OF 1 TO 2 MICROGRAM/ML).
     Route: 048
  3. AMPHOTERICIN B [Concomitant]
     Active Substance: AMPHOTERICIN B
     Indication: Mucormycosis
     Dosage: 5 MG/KG, UNK
     Route: 042
  4. AMPHOTERICIN B [Concomitant]
     Active Substance: AMPHOTERICIN B
     Dosage: 5 MG/KG, UNK
     Route: 042
  5. AMPHOTERICIN B [Concomitant]
     Active Substance: AMPHOTERICIN B
     Dosage: 5 MG/KG, UNK
     Route: 042
  6. TACROLIMUS [Concomitant]
     Active Substance: TACROLIMUS
     Indication: Immunosuppression
     Dosage: UNK
     Route: 048
  7. METHYLPREDNISOLONE [Concomitant]
     Active Substance: METHYLPREDNISOLONE
     Indication: Immunosuppression
     Dosage: UNK
     Route: 042
  8. MYCOPHENOLATE MOFETIL [Concomitant]
     Active Substance: MYCOPHENOLATE MOFETIL
     Indication: Immunosuppression
     Dosage: UNK
  9. VALGANCICLOVIR HYDROCHLORIDE [Concomitant]
     Active Substance: VALGANCICLOVIR HYDROCHLORIDE
     Indication: Prophylaxis
     Dosage: UNK

REACTIONS (4)
  - Gastrointestinal disorder [Unknown]
  - Vomiting [Unknown]
  - Decreased appetite [Unknown]
  - Product use in unapproved indication [Unknown]
